FAERS Safety Report 7260445-1 (Version None)
Quarter: 2011Q1

REPORT INFORMATION
  Report Type: 
  Country: None (occurrence: None)
  Receive Date: 20110130
  Receipt Date: 20101109
  Transmission Date: 20110831
  Serious: No
  Sender: FDA-Public Use
  Company Number: US-ABBOTT-10P-163-0684448-00

PATIENT
  Age: 46 Year
  Sex: Male

DRUGS (13)
  1. NICOTINE [Concomitant]
     Indication: EX-TOBACCO USER
     Route: 062
  2. RELAFEN [Concomitant]
     Indication: INFLAMMATION
  3. ZUPLENZ [Concomitant]
     Indication: VOMITING
  4. NORCO [Concomitant]
     Indication: PAIN
     Dosage: 10-325
  5. LEVSIN [Concomitant]
     Indication: CROHN'S DISEASE
  6. ZUPLENZ [Concomitant]
     Indication: NAUSEA
     Route: 060
  7. PENTASA [Concomitant]
     Indication: CROHN'S DISEASE
     Dosage: TWO TABS QID
  8. VALIUM [Concomitant]
     Indication: NERVOUSNESS
  9. HUMIRA [Suspect]
     Indication: CROHN'S DISEASE
     Dates: start: 20101001
  10. PHENERGAN [Concomitant]
     Indication: VOMITING
  11. VITAMIN B-12 [Concomitant]
     Indication: BLOOD DISORDER
     Dosage: 1000 MCG/ML
  12. ENTOCORT EC [Concomitant]
     Indication: CROHN'S DISEASE
  13. PHENERGAN [Concomitant]
     Indication: NAUSEA
     Dosage: 2 TAB QID

REACTIONS (5)
  - COUGH [None]
  - PHARYNGEAL ERYTHEMA [None]
  - DYSPNOEA [None]
  - DECREASED APPETITE [None]
  - WEIGHT DECREASED [None]
